FAERS Safety Report 23103978 (Version 1)
Quarter: 2023Q4

REPORT INFORMATION
  Report Type: Report from Study
  Country: IT (occurrence: IT)
  Receive Date: 20231025
  Receipt Date: 20231025
  Transmission Date: 20240109
  Serious: Yes (Hospitalization)
  Sender: FDA-Public Use
  Company Number: IT-JNJFOC-20231018251

PATIENT
  Age: 8 Decade
  Sex: Male

DRUGS (3)
  1. LENALIDOMIDE [Suspect]
     Active Substance: LENALIDOMIDE
     Indication: Plasma cell myeloma
     Dosage: 24 MILLIGRAM
     Route: 065
     Dates: start: 20210906, end: 20211102
  2. DEXAMETHASONE [Suspect]
     Active Substance: DEXAMETHASONE
     Indication: Plasma cell myeloma
     Dosage: 40 MILLIGRAM
     Route: 065
     Dates: start: 20210906, end: 20211102
  3. DARATUMUMAB [Suspect]
     Active Substance: DARATUMUMAB
     Indication: Plasma cell myeloma
     Dosage: 1300 MILLIGRAM
     Route: 065
     Dates: start: 20210906, end: 20211102

REACTIONS (1)
  - Bronchial wall thickening [Recovered/Resolved]

NARRATIVE: CASE EVENT DATE: 20211112
